FAERS Safety Report 16187256 (Version 2)
Quarter: 2019Q2

REPORT INFORMATION
  Report Type: Report from Study
  Country: None (occurrence: BR)
  Receive Date: 20190411
  Receipt Date: 20190428
  Transmission Date: 20190711
  Serious: Yes (Hospitalization, Other)
  Sender: FDA-Public Use
  Company Number: BR-ABBVIE-19K-020-2738179-00

PATIENT
  Sex: Female
  Weight: 65 kg

DRUGS (1)
  1. HUMIRA [Suspect]
     Active Substance: ADALIMUMAB
     Indication: CROHN^S DISEASE
     Route: 058
     Dates: start: 20130315

REACTIONS (17)
  - Abdominal distension [Unknown]
  - Gastrointestinal inflammation [Not Recovered/Not Resolved]
  - Viral infection [Recovered/Resolved]
  - Benign neoplasm [Unknown]
  - Intestinal ulcer [Not Recovered/Not Resolved]
  - Hypoacusis [Unknown]
  - Gastrointestinal disorder [Recovering/Resolving]
  - Intestinal cyst [Unknown]
  - Osteoarthritis [Unknown]
  - Cerebral ventricle collapse [Unknown]
  - Insomnia [Unknown]
  - Abdominal pain [Recovered/Resolved]
  - Anaemia [Unknown]
  - Appendix disorder [Recovering/Resolving]
  - Ileal stenosis [Not Recovered/Not Resolved]
  - Diarrhoea [Unknown]
  - Pain [Unknown]

NARRATIVE: CASE EVENT DATE: 2016
